FAERS Safety Report 5866829-8 (Version None)
Quarter: 2008Q3

REPORT INFORMATION
  Report Type: 
  Country: None (occurrence: None)
  Receive Date: 20080902
  Receipt Date: 20080822
  Transmission Date: 20090109
  Serious: Yes (Hospitalization)
  Sender: FDA-Public Use
  Company Number: US-JNJFOC-20080805479

PATIENT
  Sex: Female
  Weight: 106.14 kg

DRUGS (2)
  1. DURAGESIC-100 [Suspect]
     Indication: BACK PAIN
     Route: 062
  2. NORCO [Concomitant]
     Indication: BREAKTHROUGH PAIN
     Route: 048

REACTIONS (4)
  - ABDOMINAL PAIN [None]
  - HYPERHIDROSIS [None]
  - SINUS DISORDER [None]
  - SUPRAVENTRICULAR TACHYCARDIA [None]
